FAERS Safety Report 13106854 (Version 1)
Quarter: 2017Q1

REPORT INFORMATION
  Report Type: Report from Study
  Country: None (occurrence: DE)
  Receive Date: 20170111
  Receipt Date: 20170111
  Transmission Date: 20170428
  Serious: Yes (Other)
  Sender: FDA-Public Use
  Company Number: DE-ABBVIE-17P-062-1833007-00

PATIENT
  Age: 55 Year
  Sex: Male

DRUGS (6)
  1. PANKREON [Concomitant]
     Indication: PRODUCT USED FOR UNKNOWN INDICATION
  2. HCT [Concomitant]
     Active Substance: HYDROCHLOROTHIAZIDE
     Indication: PRODUCT USED FOR UNKNOWN INDICATION
  3. HUMIRA [Suspect]
     Active Substance: ADALIMUMAB
     Indication: RHEUMATOID ARTHRITIS
     Route: 058
     Dates: start: 20031010
  4. INSUMAN RAPID [Concomitant]
     Active Substance: INSULIN HUMAN
     Indication: PRODUCT USED FOR UNKNOWN INDICATION
  5. TRESIBA [Concomitant]
     Active Substance: INSULIN DEGLUDEC
     Indication: PRODUCT USED FOR UNKNOWN INDICATION
  6. RAMIPRIL. [Concomitant]
     Active Substance: RAMIPRIL
     Indication: PRODUCT USED FOR UNKNOWN INDICATION

REACTIONS (6)
  - Nasopharyngitis [Recovering/Resolving]
  - Pain [Recovering/Resolving]
  - Bronchitis [Recovering/Resolving]
  - Joint dislocation [Recovering/Resolving]
  - Meniscus injury [Recovering/Resolving]
  - Cartilage injury [Recovering/Resolving]

NARRATIVE: CASE EVENT DATE: 201508
